FAERS Safety Report 18996955 (Version 2)
Quarter: 2021Q1

REPORT INFORMATION
  Report Type: Report from Study
  Country: DE (occurrence: DE)
  Receive Date: 20210311
  Receipt Date: 20210315
  Transmission Date: 20210420
  Serious: Yes (Hospitalization)
  Sender: FDA-Public Use
  Company Number: DE-EISAI MEDICAL RESEARCH-EC-2021-089104

PATIENT
  Age: 70 Year
  Sex: Female

DRUGS (16)
  1. PREDNISOLONE. [Suspect]
     Active Substance: PREDNISOLONE
     Indication: LIPASE INCREASED
     Route: 048
     Dates: start: 20210126, end: 20210126
  2. PREDNISOLON [Concomitant]
     Active Substance: PREDNISOLONE
  3. MOXONIDINE [Concomitant]
     Active Substance: MOXONIDINE
  4. PANTOPRAZOLE [Concomitant]
     Active Substance: PANTOPRAZOLE
  5. LENVATINIB [Suspect]
     Active Substance: LENVATINIB
     Route: 048
     Dates: start: 20210126
  6. AMLODIPINE [Concomitant]
     Active Substance: AMLODIPINE BESYLATE
  7. THYRONAJOD [Concomitant]
     Active Substance: LEVOTHYROXINE SODIUM\POTASSIUM IODIDE
  8. PEMBROLIZUMAB. [Suspect]
     Active Substance: PEMBROLIZUMAB
     Indication: ENDOMETRIAL CANCER
     Route: 041
     Dates: start: 20200407, end: 20201215
  9. XELEVIA [Concomitant]
     Active Substance: SITAGLIPTIN PHOSPHATE
  10. CANDESARTAN. [Concomitant]
     Active Substance: CANDESARTAN
  11. PEMBROLIZUMAB. [Suspect]
     Active Substance: PEMBROLIZUMAB
     Route: 041
     Dates: start: 20210105, end: 20210105
  12. PREDNISOLONE. [Suspect]
     Active Substance: PREDNISOLONE
     Route: 048
     Dates: start: 20210126
  13. METOPROLOL. [Concomitant]
     Active Substance: METOPROLOL
  14. ACTRAPID [Concomitant]
     Active Substance: INSULIN HUMAN
  15. LENVATINIB [Suspect]
     Active Substance: LENVATINIB
     Indication: ENDOMETRIAL CANCER
     Dosage: STARTING DOSE AT 20 MG, FLUCTUATED DOSE
     Route: 048
     Dates: start: 20200407, end: 20210125
  16. EBRANTIL [Concomitant]
     Active Substance: URAPIDIL

REACTIONS (5)
  - Hypotension [Recovering/Resolving]
  - Hyperglycaemia [Recovering/Resolving]
  - Type 2 diabetes mellitus [Recovering/Resolving]
  - General physical health deterioration [Unknown]
  - Bradycardia [Recovering/Resolving]

NARRATIVE: CASE EVENT DATE: 20210210
